FAERS Safety Report 20473971 (Version 2)
Quarter: 2022Q1

REPORT INFORMATION
  Report Type: Spontaneous
  Country: US (occurrence: US)
  Receive Date: 20220215
  Receipt Date: 20220224
  Transmission Date: 20220423
  Serious: No
  Sender: FDA-Public Use
  Company Number: US-AIMMUNE THERAPEUTICS, INC.-2022AIMT00086

PATIENT

DRUGS (1)
  1. PALFORZIA [Suspect]
     Active Substance: PEANUT
     Indication: Food allergy
     Dosage: INITIAL DOSE ESCALATION (0.5-3MG, ONCE)
     Route: 048
     Dates: start: 20220214, end: 20220214

REACTIONS (1)
  - Intentional underdose [Recovered/Resolved]

NARRATIVE: CASE EVENT DATE: 20220214
